FAERS Safety Report 24969428 (Version 4)
Quarter: 2025Q2

REPORT INFORMATION
  Report Type: Report from Study
  Country: GB (occurrence: GB)
  Receive Date: 20250214
  Receipt Date: 20250605
  Transmission Date: 20250717
  Serious: Yes (Hospitalization, Other)
  Sender: NOVARTIS
  Company Number: GB-002147023-NVSC2024GB215020

PATIENT
  Sex: Female

DRUGS (3)
  1. COSENTYX [Suspect]
     Active Substance: SECUKINUMAB
     Indication: Hidradenitis
     Dosage: 300 MG, QW, OTHER (ON WEEKS 0, 1, 2, 3 AND 4 FOLLOWED BY ONCE MONTHLY THEREAFTER)
     Route: 058
  2. COSENTYX [Suspect]
     Active Substance: SECUKINUMAB
     Dosage: 300 MG, QMO
     Route: 058
     Dates: start: 20241030
  3. COSENTYX [Suspect]
     Active Substance: SECUKINUMAB
     Dosage: 300 MG, QMO
     Route: 058
     Dates: start: 20241206

REACTIONS (6)
  - Peritonsillar abscess [Unknown]
  - Illness [Unknown]
  - Streptococcal infection [Not Recovered/Not Resolved]
  - Injection site pruritus [Unknown]
  - Device use error [Unknown]
  - Inappropriate schedule of product administration [Unknown]
